FAERS Safety Report 12132801 (Version 1)
Quarter: 2016Q1

REPORT INFORMATION
  Report Type: Spontaneous
  Country: US (occurrence: US)
  Receive Date: 20160301
  Receipt Date: 20160301
  Transmission Date: 20160526
  Serious: No
  Sender: FDA-Public Use
  Company Number: US-JNJFOC-20160122914

PATIENT
  Age: 66 Year
  Sex: Male
  Weight: 111.13 kg

DRUGS (2)
  1. IMODIUM A-D [Suspect]
     Active Substance: LOPERAMIDE HYDROCHLORIDE
     Route: 048
  2. IMODIUM A-D [Suspect]
     Active Substance: LOPERAMIDE HYDROCHLORIDE
     Indication: DIARRHOEA
     Dosage: 1 CUP FULL 3 TO 4 TIMES
     Route: 048

REACTIONS (2)
  - Incorrect dose administered [Unknown]
  - Intentional product use issue [Unknown]
